FAERS Safety Report 8113623-3 (Version None)
Quarter: 2012Q1

REPORT INFORMATION
  Report Type: 
  Country: None (occurrence: None)
  Receive Date: 20120131
  Receipt Date: 20120120
  Transmission Date: 20120608
  Serious: Yes (Hospitalization)
  Sender: FDA-Public Use
  Company Number: AUR-APL-2010-02903

PATIENT
  Age: 75 Year
  Sex: Female
  Weight: 60 kg

DRUGS (5)
  1. CITALOPRAM HYDROBROMIDE [Suspect]
     Indication: NORMAL PRESSURE HYDROCEPHALUS
     Dosage: 20 MG (20 MG, 1 IN 1 D), ORAL
     Route: 048
     Dates: start: 20080201, end: 20081201
  2. BISOPROLOL FUMARATE AND HYDROCHLOROTHIAZIDE [Suspect]
     Indication: HYPERTENSION
     Dosage: 1DF TWICE IN A DAY (1DF = 5 MG BISOPROLOL AND 12.5 MG HYDROCHLOROTHIAZIDE) (1 DOSAGE FORS, 2 IN 1 D)
     Route: 048
     Dates: start: 20060601, end: 20081201
  3. MELPERONE (MELPERONE) [Concomitant]
  4. METFORMIN HCL [Concomitant]
  5. RAMIPRIL [Suspect]
     Indication: HYPERTENSION
     Dosage: 10 MG (10 MG, 1 IN 1 D), ORAL
     Route: 048
     Dates: start: 20060601

REACTIONS (13)
  - GENERAL PHYSICAL HEALTH DETERIORATION [None]
  - CEREBRAL SMALL VESSEL ISCHAEMIC DISEASE [None]
  - HYPOKALAEMIA [None]
  - MENTAL IMPAIRMENT [None]
  - DIARRHOEA [None]
  - HYPONATRAEMIA [None]
  - HYDROCEPHALUS [None]
  - GASTROINTESTINAL HAEMORRHAGE [None]
  - BLOOD ELECTROLYTES ABNORMAL [None]
  - BEDRIDDEN [None]
  - NORMAL PRESSURE HYDROCEPHALUS [None]
  - TYPE 2 DIABETES MELLITUS [None]
  - INAPPROPRIATE ANTIDIURETIC HORMONE SECRETION [None]
